FAERS Safety Report 8025927-3 (Version None)
Quarter: 2012Q1

REPORT INFORMATION
  Report Type: 
  Country: None (occurrence: None)
  Receive Date: 20120105
  Receipt Date: 20110922
  Transmission Date: 20120608
  Serious: No
  Sender: FDA-Public Use
  Company Number: US-ABBOTT-11P-163-0851937-00

PATIENT
  Sex: Female
  Weight: 49.94 kg

DRUGS (4)
  1. SYNTHROID [Suspect]
     Indication: BLOOD THYROID STIMULATING HORMONE DECREASED
     Dates: start: 20100101, end: 20110910
  2. CLARITIN-D [Concomitant]
     Indication: HYPERSENSITIVITY
  3. SYNTHROID [Suspect]
     Dates: start: 20090101, end: 20100101
  4. MULTI-VITAMIN [Concomitant]
     Indication: VITAMIN SUPPLEMENTATION

REACTIONS (2)
  - RASH [None]
  - PRURITUS [None]
